FAERS Safety Report 9744424 (Version 1)
Quarter: 2013Q4

REPORT INFORMATION
  Report Type: Spontaneous
  Country: US (occurrence: US)
  Receive Date: 20131210
  Receipt Date: 20131210
  Transmission Date: 20140711
  Serious: Yes (Life-Threatening)
  Sender: FDA-Public Use
  Company Number: US-ASTRAZENECA-2013SE89613

PATIENT
  Age: 35 Year
  Sex: Male

DRUGS (1)
  1. PROPOFOL [Suspect]
     Indication: MAINTENANCE OF ANAESTHESIA
     Dosage: 120-160MCG/KG/MIN
     Route: 042

REACTIONS (2)
  - Overdose [Unknown]
  - Propofol infusion syndrome [Recovered/Resolved]
